FAERS Safety Report 19300348 (Version 1)
Quarter: 2021Q2

REPORT INFORMATION
  Report Type: Spontaneous
  Country: US (occurrence: US)
  Receive Date: 20210525
  Receipt Date: 20210525
  Transmission Date: 20210717
  Serious: Yes (Life-Threatening, Other)
  Sender: FDA-Public Use
  Company Number: None

PATIENT
  Age: 45 Year
  Sex: Female

DRUGS (2)
  1. AFREZZA [Concomitant]
     Active Substance: INSULIN HUMAN
  2. TRESIBA [Suspect]
     Active Substance: INSULIN DEGLUDEC
     Indication: DIABETES MELLITUS
     Dosage: ?          QUANTITY:18 INJECTION(S);?
     Route: 030
     Dates: end: 20210525

REACTIONS (4)
  - Device issue [None]
  - Incorrect dose administered [None]
  - Hypoglycaemia [None]
  - Device malfunction [None]

NARRATIVE: CASE EVENT DATE: 20210525
